FAERS Safety Report 12530443 (Version 1)
Quarter: 2016Q3

REPORT INFORMATION
  Report Type: Spontaneous
  Country: US (occurrence: None)
  Receive Date: 20160705
  Receipt Date: 20160705
  Transmission Date: 20161109
  Serious: Yes (Other)
  Sender: FDA-Public Use
  Company Number: None

PATIENT
  Age: 64 Year
  Sex: Male
  Weight: 74.84 kg

DRUGS (6)
  1. RESTORIL [Suspect]
     Active Substance: TEMAZEPAM
  2. DAILY MULTI-VITAMIN WITH MINERALS [Concomitant]
  3. NATURE-THROID [Concomitant]
     Active Substance: THYROID, PORCINE
  4. DEXILANT [Suspect]
     Active Substance: DEXLANSOPRAZOLE
     Indication: OESOPHAGITIS
     Route: 048
     Dates: start: 20160623, end: 20160630
  5. VITAMIN D3 [Concomitant]
     Active Substance: CHOLECALCIFEROL
  6. DEPO-TESTOSTERONE [Concomitant]
     Active Substance: TESTOSTERONE CYPIONATE

REACTIONS (3)
  - Insomnia [None]
  - Gastrooesophageal reflux disease [None]
  - Oesophageal disorder [None]

NARRATIVE: CASE EVENT DATE: 20160626
